FAERS Safety Report 8011433-9 (Version None)
Quarter: 2011Q4

REPORT INFORMATION
  Report Type: 
  Country: None (occurrence: None)
  Receive Date: 20111222
  Receipt Date: 20111207
  Transmission Date: 20120403
  Serious: Yes (Hospitalization)
  Sender: FDA-Public Use
  Company Number: CIP11003301

PATIENT
  Sex: Female

DRUGS (1)
  1. DIDROCAL (ETIDRONATE DISODIUM/CALCIUM CARBONATE) TABLET, 400/1250MG [Suspect]
     Dosage: ORAL
     Route: 048
     Dates: start: 20111101

REACTIONS (1)
  - UNEVALUABLE EVENT [None]
